FAERS Safety Report 6967608-0 (Version None)
Quarter: 2010Q3

REPORT INFORMATION
  Report Type: 
  Country: None (occurrence: None)
  Receive Date: 20100907
  Receipt Date: 20100830
  Transmission Date: 20110219
  Serious: Yes (Death)
  Sender: FDA-Public Use
  Company Number: US-MEDIMMUNE-MEDI-0011503

PATIENT
  Age: 61 Year
  Sex: Male

DRUGS (2)
  1. SYNAGIS [Suspect]
     Route: 042
  2. RIBAVIRIN [Concomitant]

REACTIONS (3)
  - MULTI-ORGAN FAILURE [None]
  - SEPSIS [None]
  - TREATMENT FAILURE [None]
